FAERS Safety Report 9870989 (Version 5)
Quarter: 2014Q2

REPORT INFORMATION
  Report Type: Report from Study
  Country: US (occurrence: US)
  Receive Date: 20140205
  Receipt Date: 20140509
  Transmission Date: 20141212
  Serious: Yes (Hospitalization, Other)
  Sender: FDA-Public Use
  Company Number: US-SANOFI-AVENTIS-2013SA092235

PATIENT
  Age: 67 Year
  Sex: Female

DRUGS (8)
  1. AUBAGIO [Suspect]
     Indication: MULTIPLE SCLEROSIS
     Route: 048
     Dates: start: 20130823
  2. ANALGESICS [Suspect]
  3. NITROFURANTOIN [Concomitant]
     Indication: PROPHYLAXIS URINARY TRACT INFECTION
  4. CORTICOSTEROID NOS [Concomitant]
  5. SYNTHROID [Concomitant]
  6. VITAMIN D [Concomitant]
  7. BACLOFEN [Concomitant]
  8. WELLBUTRIN [Concomitant]

REACTIONS (21)
  - Lower limb fracture [Unknown]
  - Fall [Unknown]
  - Fracture [Unknown]
  - Multiple sclerosis relapse [Not Recovered/Not Resolved]
  - Bedridden [Not Recovered/Not Resolved]
  - Balance disorder [Unknown]
  - Multiple sclerosis relapse [Unknown]
  - Foot deformity [Not Recovered/Not Resolved]
  - Optic neuritis [Not Recovered/Not Resolved]
  - Visual field defect [Not Recovered/Not Resolved]
  - Decreased appetite [Not Recovered/Not Resolved]
  - Chromaturia [Not Recovered/Not Resolved]
  - Abdominal distension [Not Recovered/Not Resolved]
  - Asthenia [Not Recovered/Not Resolved]
  - Procedural pain [Unknown]
  - Malaise [Not Recovered/Not Resolved]
  - Nausea [Not Recovered/Not Resolved]
  - Pain [Not Recovered/Not Resolved]
  - Hypoaesthesia [Recovered/Resolved]
  - Hypertension [Unknown]
  - Drug dose omission [Unknown]
